FAERS Safety Report 5602358-4 (Version None)
Quarter: 2008Q1

REPORT INFORMATION
  Report Type: 
  Country: None (occurrence: None)
  Receive Date: 20080118
  Receipt Date: 20080109
  Transmission Date: 20080703
  Serious: Yes (Other)
  Sender: FDA-Public Use
  Company Number: 2008000797

PATIENT
  Age: 21 Month

DRUGS (1)
  1. SUDACARE SHOWER SOOTHERS (NO ACTIVE INGREDIENT) [Suspect]
     Dosage: UNSPECIFIED, TOPICAL
     Route: 061

REACTIONS (2)
  - CAUSTIC INJURY [None]
  - MEDICATION ERROR [None]
